FAERS Safety Report 6612260-7 (Version None)
Quarter: 2010Q1

REPORT INFORMATION
  Report Type: 
  Country: None (occurrence: None)
  Receive Date: 20100303
  Receipt Date: 20100218
  Transmission Date: 20100710
  Serious: Yes (Hospitalization)
  Sender: FDA-Public Use
  Company Number: US-ROCHE-677499

PATIENT
  Sex: Female
  Weight: 74 kg

DRUGS (15)
  1. BEVACIZUMAB [Suspect]
     Indication: GLIOBLASTOMA
     Dosage: FORM: INFUSION,
     Route: 042
     Dates: start: 20091113
  2. BEVACIZUMAB [Suspect]
     Route: 042
     Dates: start: 20091124, end: 20091208
  3. ERLOTINIB [Suspect]
     Indication: GLIOBLASTOMA
     Route: 048
     Dates: start: 20091103
  4. ERLOTINIB [Suspect]
     Route: 048
     Dates: start: 20091116, end: 20091207
  5. TEMOZOLOMIDE [Suspect]
     Indication: GLIOBLASTOMA
     Route: 048
     Dates: start: 20091103, end: 20091209
  6. KEPPRA [Concomitant]
     Dates: start: 20091015
  7. CELEXA [Concomitant]
     Dates: start: 20091015
  8. PRILOSEC [Concomitant]
     Dates: start: 20091110
  9. BACTRIM [Concomitant]
     Dates: start: 20091113
  10. SENOKOT [Concomitant]
     Dosage: DRUG: SENEKOT
     Dates: start: 20091110
  11. BENADRYL [Concomitant]
     Dates: start: 20091102
  12. AMBIEN [Concomitant]
     Dates: start: 20091118
  13. HYDROCORTISONE [Concomitant]
     Dates: start: 20091115
  14. ZOFRAN [Concomitant]
     Dates: start: 20091103
  15. VICODIN [Concomitant]
     Dates: start: 20091210

REACTIONS (1)
  - OESOPHAGEAL INFECTION [None]
